FAERS Safety Report 4507485-0 (Version None)
Quarter: 2004Q4

REPORT INFORMATION
  Report Type: 
  Country: None (occurrence: None)
  Receive Date: 20041118
  Receipt Date: 20041110
  Transmission Date: 20050328
  Serious: Yes (Other)
  Sender: FDA-Public Use
  Company Number: 2004091181

PATIENT
  Age: 50 Year
  Sex: Male

DRUGS (6)
  1. TAHOR (ATORVASTATIN) [Suspect]
     Indication: HYPERCHOLESTEROLAEMIA
     Dosage: 20 MG
     Dates: start: 20010101, end: 20041101
  2. CLOPIDOGREL BISULFATE [Concomitant]
  3. BISOPROLOL FUMARATE [Concomitant]
  4. ACETYLSALICYLIC ACID SRT [Concomitant]
  5. GLYBURIDE [Concomitant]
  6. RAMIPRIL [Concomitant]

REACTIONS (2)
  - BLOOD CREATINE PHOSPHOKINASE INCREASED [None]
  - MUSCLE CRAMP [None]
